FAERS Safety Report 4373768-0 (Version None)
Quarter: 2004Q2

REPORT INFORMATION
  Report Type: 
  Country: None (occurrence: None)
  Receive Date: 20040603
  Receipt Date: 20040518
  Transmission Date: 20050107
  Serious: Yes (Death)
  Sender: FDA-Public Use
  Company Number: K200400744

PATIENT
  Age: 41 Year
  Sex: Male

DRUGS (5)
  1. KEMADRIN [Suspect]
     Dosage: 5 MG, QID
     Route: 048
  2. CLOZAPINE [Suspect]
     Indication: SCHIZOPHRENIA
     Dosage: 200 MG, QD, ORAL
     Route: 048
     Dates: start: 20040112
  3. THORAZINE [Suspect]
     Dosage: 300 MG, TID
     Route: 048
  4. ZOPICLONE (ZOPICLONE) [Suspect]
     Dosage: 1.5 MG, QD AT NIGHT
     Route: 048
  5. CLONAZEPAM [Suspect]
     Dosage: 0.5 MG, QD
     Route: 048

REACTIONS (10)
  - ARTERITIS [None]
  - CARDIO-RESPIRATORY ARREST [None]
  - DEHYDRATION [None]
  - DIARRHOEA [None]
  - DRUG INTERACTION [None]
  - DRUG LEVEL INCREASED [None]
  - MYOCARDITIS [None]
  - ORTHOSTATIC HYPOTENSION [None]
  - PERICARDITIS [None]
  - RENAL IMPAIRMENT [None]
